FAERS Safety Report 9263316 (Version 1)
Quarter: 2013Q2

REPORT INFORMATION
  Report Type: Spontaneous
  Country: US (occurrence: US)
  Receive Date: 20130430
  Receipt Date: 20130430
  Transmission Date: 20140414
  Serious: No
  Sender: FDA-Public Use
  Company Number: US-ABBOTT-12P-163-1014246-00

PATIENT
  Age: 91 Year
  Sex: Female
  Weight: 45.4 kg

DRUGS (3)
  1. CREON [Suspect]
     Indication: PANCREATIC DISORDER
     Dosage: 12000, 2 CAPS PER MEAL AND 6 TOTAL DAILY, 3 TIMES DAILY WITH MEALS
     Route: 048
     Dates: start: 20121015
  2. FLONASE [Concomitant]
     Indication: PRODUCT USED FOR UNKNOWN INDICATION
     Dosage: SPRAY
     Route: 045
  3. OTHER UNKNOWN SUPPLEMENTS [Concomitant]
     Indication: PRODUCT USED FOR UNKNOWN INDICATION

REACTIONS (2)
  - Musculoskeletal pain [Recovering/Resolving]
  - Pain in extremity [Recovering/Resolving]
